FAERS Safety Report 15478673 (Version 2)
Quarter: 2019Q1

REPORT INFORMATION
  Report Type: Spontaneous
  Country: JP (occurrence: JP)
  Receive Date: 20181009
  Receipt Date: 20190211
  Transmission Date: 20190417
  Serious: Yes (Other)
  Sender: FDA-Public Use
  Company Number: JP-PFIZER INC-2018397655

PATIENT
  Age: 85 Year
  Sex: Female
  Weight: 45 kg

DRUGS (3)
  1. BAKUMONDOTO [Suspect]
     Active Substance: HERBALS
     Dosage: 3 G, 3X/DAY
     Dates: start: 20180926, end: 20181001
  2. ZITHROMAC 250MG [Suspect]
     Active Substance: AZITHROMYCIN DIHYDRATE
     Indication: PYREXIA
     Dosage: 500 MG, 1X/DAY
     Route: 048
     Dates: start: 20180926, end: 20180928
  3. CARBOCISTEINE [Suspect]
     Active Substance: CARBOCYSTEINE
     Dosage: 1 G, 3X/DAY
     Dates: start: 20180926, end: 20181001

REACTIONS (2)
  - Delirium [Recovered/Resolved]
  - Feeling abnormal [Unknown]

NARRATIVE: CASE EVENT DATE: 20180927
